FAERS Safety Report 15496280 (Version 1)
Quarter: 2018Q4

REPORT INFORMATION
  Report Type: Spontaneous
  Country: US (occurrence: US)
  Receive Date: 20181014
  Receipt Date: 20181014
  Transmission Date: 20190205
  Serious: No
  Sender: FDA-Public Use
  Company Number: US-BIOGEN-2018BI00643776

PATIENT
  Sex: Female

DRUGS (1)
  1. TYSABRI [Suspect]
     Active Substance: NATALIZUMAB
     Indication: MULTIPLE SCLEROSIS
     Route: 042
     Dates: start: 20180912

REACTIONS (6)
  - Musculoskeletal pain [Unknown]
  - Dizziness [Unknown]
  - Pain in extremity [Unknown]
  - Hemiparesis [Unknown]
  - Motor dysfunction [Unknown]
  - Headache [Unknown]
